FAERS Safety Report 14609182 (Version 1)
Quarter: 2018Q1

REPORT INFORMATION
  Report Type: Spontaneous
  Country: US (occurrence: US)
  Receive Date: 20180307
  Receipt Date: 20180307
  Transmission Date: 20180509
  Serious: No
  Sender: FDA-Public Use
  Company Number: US-ABBVIE-17P-163-2050635-00

PATIENT
  Age: 31 Year
  Sex: Female

DRUGS (1)
  1. ANDROGEL [Suspect]
     Active Substance: TESTOSTERONE
     Indication: GENDER DYSPHORIA
     Route: 062
     Dates: start: 201702

REACTIONS (1)
  - Off label use [Not Recovered/Not Resolved]
